FAERS Safety Report 13312925 (Version 2)
Quarter: 2017Q1

REPORT INFORMATION
  Report Type: Report from Study
  Country: BE (occurrence: BE)
  Receive Date: 20170309
  Receipt Date: 20170313
  Transmission Date: 20170428
  Serious: Yes (Death, Hospitalization)
  Sender: FDA-Public Use
  Company Number: BE-JNJFOC-20170307235

PATIENT
  Age: 80 Year
  Sex: Male
  Weight: 64.5 kg

DRUGS (1)
  1. IBRUTINIB [Suspect]
     Active Substance: IBRUTINIB
     Indication: PRODUCT USED FOR UNKNOWN INDICATION
     Route: 048
     Dates: start: 20170223, end: 20170307

REACTIONS (2)
  - Rib fracture [Fatal]
  - Haemothorax [Fatal]

NARRATIVE: CASE EVENT DATE: 20170304
